FAERS Safety Report 9278480 (Version 1)
Quarter: 2013Q2

REPORT INFORMATION
  Report Type: Report from Study
  Country: VE (occurrence: VE)
  Receive Date: 20130508
  Receipt Date: 20130508
  Transmission Date: 20140414
  Serious: Yes (Other)
  Sender: FDA-Public Use
  Company Number: VE-ABBOTT-13P-178-1085190-00

PATIENT
  Age: 52 Year
  Sex: Female
  Weight: 65 kg

DRUGS (2)
  1. HUMIRA [Suspect]
     Indication: PSORIASIS
     Route: 058
     Dates: start: 20130404
  2. HUMIRA [Suspect]
     Route: 058

REACTIONS (3)
  - Lymphadenopathy [Not Recovered/Not Resolved]
  - Papule [Not Recovered/Not Resolved]
  - Back pain [Not Recovered/Not Resolved]
